FAERS Safety Report 10868990 (Version 1)
Quarter: 2015Q1

REPORT INFORMATION
  Report Type: Spontaneous
  Country: US (occurrence: US)
  Receive Date: 20150225
  Receipt Date: 20150225
  Transmission Date: 20150721
  Serious: Yes (Hospitalization, Other)
  Sender: FDA-Public Use
  Company Number: US-MYLANLABS-2014SP002108

PATIENT
  Age: 48 Year
  Sex: Female
  Weight: 52.16 kg

DRUGS (26)
  1. PIPERACILLIN AND TAZOBACTAM [Suspect]
     Active Substance: PIPERACILLIN SODIUM\TAZOBACTAM SODIUM
     Indication: PRODUCT USED FOR UNKNOWN INDICATION
     Route: 042
     Dates: start: 201402
  2. BACTRIM [Suspect]
     Active Substance: SULFAMETHOXAZOLE\TRIMETHOPRIM
     Indication: PRODUCT USED FOR UNKNOWN INDICATION
  3. DIPHENHYDRAMINE HYDROCHLORIDE. [Suspect]
     Active Substance: DIPHENHYDRAMINE HYDROCHLORIDE
     Route: 042
  4. VANCOMYCIN [Suspect]
     Active Substance: VANCOMYCIN
     Route: 042
  5. VANCOMYCIN [Suspect]
     Active Substance: VANCOMYCIN
     Route: 042
     Dates: start: 201402
  6. LORAZEPAM. [Concomitant]
     Active Substance: LORAZEPAM
     Indication: SEIZURE
  7. EPINEPHRINE. [Concomitant]
     Active Substance: EPINEPHRINE
     Indication: ANAPHYLACTIC REACTION
  8. ITRACONAZOLE. [Concomitant]
     Active Substance: ITRACONAZOLE
     Indication: PRURITUS
  9. DICLOFENAC SODIUM. [Concomitant]
     Active Substance: DICLOFENAC SODIUM
     Route: 061
  10. INTERFERON GAMMA-1B [Suspect]
     Active Substance: INTERFERON GAMMA-1B
     Dates: start: 2014
  11. INTERFERON GAMMA-1B [Suspect]
     Active Substance: INTERFERON GAMMA-1B
     Route: 058
     Dates: start: 1988, end: 201401
  12. INTERFERON GAMMA-1B [Suspect]
     Active Substance: INTERFERON GAMMA-1B
     Dates: start: 1992
  13. PERAMPANEL [Concomitant]
     Active Substance: PERAMPANEL
     Indication: PRURITUS
  14. ZOLPIDEM TARTRATE. [Concomitant]
     Active Substance: ZOLPIDEM TARTRATE
  15. LISINOPRIL. [Concomitant]
     Active Substance: LISINOPRIL
     Indication: HYPERTENSION
  16. MORPHINE SULFATE. [Concomitant]
     Active Substance: MORPHINE SULFATE
     Indication: PAIN
  17. RANITIDINE HYDROCHLORIDE. [Concomitant]
     Active Substance: RANITIDINE HYDROCHLORIDE
  18. DOCUSATE SODIUM. [Concomitant]
     Active Substance: DOCUSATE SODIUM
  19. OMEPRAZOLE. [Concomitant]
     Active Substance: OMEPRAZOLE
  20. VANCOMYCIN [Suspect]
     Active Substance: VANCOMYCIN
     Indication: PRODUCT USED FOR UNKNOWN INDICATION
  21. INTERFERON GAMMA-1B [Suspect]
     Active Substance: INTERFERON GAMMA-1B
     Indication: GRANULOMA
  22. CLOBAZAM [Concomitant]
     Active Substance: CLOBAZAM
     Indication: PRURITUS
  23. LEVETIRACETAM. [Concomitant]
     Active Substance: LEVETIRACETAM
     Indication: EPILEPSY
  24. LAMOTRIGINE. [Concomitant]
     Active Substance: LAMOTRIGINE
     Indication: EPILEPSY
  25. DESVENLAFAXINE SUCCINATE [Concomitant]
     Active Substance: DESVENLAFAXINE SUCCINATE
  26. SENNA                              /00571901/ [Concomitant]

REACTIONS (30)
  - Cellulitis [Recovered/Resolved]
  - Diarrhoea [Unknown]
  - Disorientation [Unknown]
  - Iron deficiency anaemia [Not Recovered/Not Resolved]
  - Red man syndrome [Recovered/Resolved]
  - Fungal oesophagitis [Unknown]
  - Weight decreased [Unknown]
  - Arthralgia [Unknown]
  - Erythema [Unknown]
  - Decreased appetite [Unknown]
  - Seizure [Unknown]
  - Lung consolidation [Unknown]
  - Lymphadenopathy [Unknown]
  - Fatigue [Unknown]
  - Joint injury [Unknown]
  - Pleural effusion [Unknown]
  - Pruritus [Unknown]
  - Pyrexia [Unknown]
  - Bursitis [Unknown]
  - Productive cough [Unknown]
  - Dysphagia [Unknown]
  - Hypotension [Unknown]
  - Dyspnoea [Unknown]
  - Fall [Unknown]
  - Chest pain [Unknown]
  - Neck pain [Unknown]
  - Dizziness [Unknown]
  - Neutrophil count decreased [Unknown]
  - Lymph node pain [Unknown]
  - Anaesthetic complication [Unknown]

NARRATIVE: CASE EVENT DATE: 20140223
